FAERS Safety Report 14785297 (Version 3)
Quarter: 2018Q2

REPORT INFORMATION
  Report Type: Report from Study
  Country: BR (occurrence: BR)
  Receive Date: 20180420
  Receipt Date: 20180601
  Transmission Date: 20180711
  Serious: Yes (Death, Hospitalization)
  Sender: FDA-Public Use
  Company Number: BR-ASTRAZENECA-2017SE87708

PATIENT
  Age: 69 Year
  Sex: Female
  Weight: 46 kg

DRUGS (18)
  1. ABEMACICLIB [Suspect]
     Active Substance: ABEMACICLIB
     Indication: BREAST CANCER METASTATIC
     Route: 048
     Dates: start: 20170403, end: 20170814
  2. PANTOPRAZOLE [Concomitant]
     Active Substance: PANTOPRAZOLE
     Dates: start: 20170414
  3. SIMETHICONE (DIMETHICONE) [Concomitant]
     Active Substance: DIMETHICONE
     Dates: start: 2011
  4. FULVESTRANT. [Suspect]
     Active Substance: FULVESTRANT
     Indication: BREAST CANCER METASTATIC
     Dosage: 5000 MG ON DAYS ONE AND 15 OF CYCLE ONE
     Route: 030
     Dates: start: 20170418
  5. TRASTUZUMAB. [Suspect]
     Active Substance: TRASTUZUMAB
     Indication: BREAST CANCER METASTATIC
     Dosage: 6 MG/KG, CYCLICAL
     Route: 042
     Dates: start: 20170503
  6. CODEINE PHOSPHATE [Concomitant]
     Active Substance: CODEINE PHOSPHATE
     Dates: start: 2013
  7. ALPRAZOLAM. [Concomitant]
     Active Substance: ALPRAZOLAM
     Dates: start: 2010
  8. BROMOPRIDE [Concomitant]
     Active Substance: BROMOPRIDE
     Dates: start: 20170414
  9. OLANZAPINE. [Concomitant]
     Active Substance: OLANZAPINE
     Dates: start: 20170619
  10. ZOLEDRONIC ACID [Concomitant]
     Active Substance: ZOLEDRONIC ACID
     Dates: start: 20161018
  11. DRAMIN B-6 [Concomitant]
     Active Substance: DIMENHYDRINATE\PYRIDOXINE HYDROCHLORIDE
  12. ONDANSETRON HYDROCHLORIDE. [Concomitant]
     Active Substance: ONDANSETRON HYDROCHLORIDE
     Dates: start: 20170504
  13. MIOSAN [Concomitant]
     Active Substance: CYCLOBENZAPRINE
     Dates: start: 20170608
  14. METAMIZOLE SODIUM [Concomitant]
     Active Substance: METAMIZOLE SODIUM
     Dates: start: 20170504
  15. MORPHINE [Concomitant]
     Active Substance: MORPHINE
     Dates: start: 20170619
  16. FULVESTRANT. [Suspect]
     Active Substance: FULVESTRANT
     Indication: BREAST CANCER METASTATIC
     Dosage: 5000 MG ON DAYS ONE AND 15 OF CYCLE ONE
     Route: 030
     Dates: start: 20170403, end: 20170417
  17. TRASTUZUMAB. [Suspect]
     Active Substance: TRASTUZUMAB
     Indication: BREAST CANCER METASTATIC
     Dosage: 8 MG/KG, CYCLICAL
     Route: 042
     Dates: start: 20170403, end: 20170403
  18. EPOETIN ALFA [Concomitant]
     Active Substance: ERYTHROPOIETIN
     Dates: start: 20170619

REACTIONS (2)
  - Pneumonia [Fatal]
  - Pulmonary embolism [Recovered/Resolved]

NARRATIVE: CASE EVENT DATE: 20170815
